FAERS Safety Report 8245547-5 (Version None)
Quarter: 2012Q1

REPORT INFORMATION
  Report Type: 
  Country: None (occurrence: None)
  Receive Date: 20120329
  Receipt Date: 20120322
  Transmission Date: 20120608
  Serious: Yes (Hospitalization, Other)
  Sender: FDA-Public Use
  Company Number: US-ASTRAZENECA-2012SE19925

PATIENT
  Age: 43 Year
  Sex: Female

DRUGS (4)
  1. SEROQUEL XR [Suspect]
     Indication: BIPOLAR DISORDER
     Route: 048
  2. PLAVIX [Concomitant]
  3. TOPAMAX [Suspect]
     Route: 065
  4. ASPIRIN [Concomitant]

REACTIONS (6)
  - HYPERTENSION [None]
  - CORONARY ARTERY DISEASE [None]
  - DRUG INEFFECTIVE [None]
  - WEIGHT INCREASED [None]
  - OEDEMA PERIPHERAL [None]
  - SWELLING [None]
